FAERS Safety Report 6473863-6 (Version None)
Quarter: 2009Q4

REPORT INFORMATION
  Report Type: 
  Country: None (occurrence: None)
  Receive Date: 20091204
  Receipt Date: 20091130
  Transmission Date: 20100525
  Serious: Yes (Hospitalization, Other)
  Sender: FDA-Public Use
  Company Number: FR-ROCHE-672195

PATIENT
  Age: 25 Year
  Sex: Male

DRUGS (9)
  1. VALGANCICLOVIR HCL [Suspect]
     Route: 065
     Dates: start: 20060101
  2. VALGANCICLOVIR HCL [Suspect]
     Route: 065
     Dates: start: 20061201, end: 20070601
  3. VALGANCICLOVIR HCL [Suspect]
     Route: 065
  4. GANCICLOVIR [Suspect]
     Indication: CYTOMEGALOVIRUS INFECTION
     Route: 065
  5. GANCICLOVIR [Suspect]
     Route: 065
  6. MYCOPHENOLATE MOFETIL [Suspect]
     Route: 065
     Dates: start: 20060101
  7. ANTI-THYMOCYTE GLOBULIN NOS [Suspect]
     Route: 065
     Dates: start: 20060101
  8. CYCLOSPORINE [Suspect]
     Indication: IMMUNOSUPPRESSION
     Route: 065
     Dates: start: 20060101
  9. PREDNISOLONE [Suspect]
     Indication: IMMUNOSUPPRESSION
     Route: 065
     Dates: start: 20060101

REACTIONS (2)
  - CYTOMEGALOVIRUS INFECTION [None]
  - ERYTHEMA NODOSUM [None]
